FAERS Safety Report 8269268-8 (Version None)
Quarter: 2012Q2

REPORT INFORMATION
  Report Type: 
  Country: None (occurrence: None)
  Receive Date: 20120409
  Receipt Date: 20120404
  Transmission Date: 20120825
  Serious: Yes (Hospitalization)
  Sender: FDA-Public Use
  Company Number: IT-ABBOTT-12P-083-0921808-00

PATIENT
  Sex: Female

DRUGS (12)
  1. TICLID [Concomitant]
     Indication: PRODUCT USED FOR UNKNOWN INDICATION
     Route: 048
  2. LASIX [Concomitant]
     Indication: PRODUCT USED FOR UNKNOWN INDICATION
     Route: 048
  3. VYTORIN [Concomitant]
     Indication: PRODUCT USED FOR UNKNOWN INDICATION
  4. PERIDON [Concomitant]
     Indication: PRODUCT USED FOR UNKNOWN INDICATION
  5. CEFTRIAXONE SODIUM [Suspect]
     Indication: PNEUMONIA
     Dosage: 1 UNIT DAILY DOSE
     Route: 042
     Dates: start: 20120329, end: 20120404
  6. CLARITHROMYCIN [Suspect]
     Indication: PNEUMONIA
     Dosage: 2 UNIT DAILY DOSE
     Route: 042
     Dates: start: 20120329, end: 20120402
  7. ASPIRIN [Concomitant]
     Indication: PRODUCT USED FOR UNKNOWN INDICATION
     Route: 048
  8. BISOPROLOL FUMARATE [Concomitant]
     Indication: PRODUCT USED FOR UNKNOWN INDICATION
     Route: 048
  9. ESKIM [Concomitant]
     Indication: PRODUCT USED FOR UNKNOWN INDICATION
  10. ALLOPURINOL [Concomitant]
     Indication: PRODUCT USED FOR UNKNOWN INDICATION
     Route: 048
  11. ESOMEPRAZOLO SODICO [Concomitant]
     Indication: PRODUCT USED FOR UNKNOWN INDICATION
  12. RAMIPRIL [Concomitant]
     Indication: PRODUCT USED FOR UNKNOWN INDICATION
     Route: 048

REACTIONS (1)
  - LIVER DISORDER [None]
